FAERS Safety Report 6423840-6 (Version None)
Quarter: 2009Q4

REPORT INFORMATION
  Report Type: 
  Country: None (occurrence: None)
  Receive Date: 20091102
  Receipt Date: 20091021
  Transmission Date: 20100525
  Serious: Yes (Hospitalization)
  Sender: FDA-Public Use
  Company Number: US-KINGPHARMUSA00001-K200901321

PATIENT
  Age: 52 Year
  Sex: Female
  Weight: 97.052 kg

DRUGS (8)
  1. FLECTOR [Suspect]
     Indication: PLANTAR FASCIITIS
     Dosage: UNK PATCH, SINGLE
     Route: 061
     Dates: start: 20091006, end: 20091006
  2. ALLERGEN EXTRACTS [Suspect]
     Dosage: UNK
     Dates: start: 20091006, end: 20091006
  3. DIOVAN [Concomitant]
     Indication: HYPERTENSION
  4. SYNTHROID [Concomitant]
  5. LYRICA [Concomitant]
     Indication: FIBROMYALGIA
  6. TRAZODONE [Concomitant]
  7. XOPENEX [Concomitant]
     Dosage: UNK, PRN
  8. PREVACID [Concomitant]
     Indication: REFLUX GASTRITIS

REACTIONS (2)
  - ANAPHYLACTIC SHOCK [None]
  - OXYGEN SATURATION DECREASED [None]
